FAERS Safety Report 5395079-7 (Version None)
Quarter: 2007Q3

REPORT INFORMATION
  Report Type: 
  Country: None (occurrence: None)
  Receive Date: 20070718
  Receipt Date: 20070307
  Transmission Date: 20080115
  Serious: Yes (Other)
  Sender: FDA-Public Use
  Company Number: 2006131063

PATIENT
  Age: 54 Year
  Sex: Male
  Weight: 108.9 kg

DRUGS (1)
  1. CELEBREX [Suspect]
     Indication: RHEUMATOID ARTHRITIS
     Dosage: 400 MG (200 MG, 2 IN  1 D), ORAL
     Route: 048
     Dates: start: 19980101

REACTIONS (1)
  - MYOCARDIAL INFARCTION [None]
